FAERS Safety Report 6454038-3 (Version None)
Quarter: 2009Q4

REPORT INFORMATION
  Report Type: 
  Country: None (occurrence: None)
  Receive Date: 20091124
  Receipt Date: 20091119
  Transmission Date: 20100525
  Serious: Yes (Other)
  Sender: FDA-Public Use
  Company Number: A0823614A

PATIENT
  Age: 54 Year
  Sex: Female

DRUGS (2)
  1. WELLBUTRIN [Suspect]
     Indication: DRUG USE FOR UNKNOWN INDICATION
     Route: 065
  2. ZOLPIDEM [Suspect]
     Indication: SLEEP DISORDER
     Dosage: 10MG UNKNOWN
     Route: 065

REACTIONS (7)
  - ALOPECIA [None]
  - DRUG DEPENDENCE [None]
  - FEELING ABNORMAL [None]
  - IMMUNE SYSTEM DISORDER [None]
  - INFECTION [None]
  - MALABSORPTION [None]
  - MALAISE [None]
